FAERS Safety Report 16480614 (Version 1)
Quarter: 2019Q2

REPORT INFORMATION
  Report Type: Spontaneous
  Country: JP (occurrence: JP)
  Receive Date: 20190626
  Receipt Date: 20190626
  Transmission Date: 20190711
  Serious: Yes (Other)
  Sender: FDA-Public Use
  Company Number: JP-BAUSCH-BL-2019-018559

PATIENT
  Age: 63 Year
  Sex: Female

DRUGS (3)
  1. CISPLATIN. [Suspect]
     Active Substance: CISPLATIN
     Indication: NASAL SINUS CANCER
     Route: 065
  2. TAXOTERE [Suspect]
     Active Substance: DOCETAXEL
     Indication: NASAL SINUS CANCER
     Route: 041
  3. FLUOROURACIL. [Suspect]
     Active Substance: FLUOROURACIL
     Indication: NASAL SINUS CANCER
     Route: 065

REACTIONS (2)
  - Bone marrow failure [Recovered/Resolved]
  - Intestinal ischaemia [Recovered/Resolved]
